FAERS Safety Report 18307940 (Version 2)
Quarter: 2023Q2

REPORT INFORMATION
  Report Type: Spontaneous
  Country: US (occurrence: US)
  Receive Date: 20200924
  Receipt Date: 20230414
  Transmission Date: 20230722
  Serious: Yes (Other)
  Sender: FDA-Public Use
  Company Number: US-NOVARTISPH-NVSC2020US256379

PATIENT

DRUGS (3)
  1. TRAMETINIB [Suspect]
     Active Substance: TRAMETINIB
     Indication: Metastatic neoplasm
     Dosage: 2 MG, QD (CYCLES WERE ADMINISTERED EVERY 28 DAYS)
     Route: 048
  2. DABRAFENIB [Suspect]
     Active Substance: DABRAFENIB
     Indication: Metastatic neoplasm
     Dosage: 150 MG, BID (CYCLES WERE ADMINISTERED EVERY 28 DAYS)
     Route: 048
  3. ONALESPIB [Suspect]
     Active Substance: ONALESPIB
     Indication: Metastatic neoplasm
     Dosage: 220 MG/M2 ON DAYS 1, 8 AND 15 (CYCLES WERE ADMINISTERED EVERY 28 DAYS)
     Route: 042

REACTIONS (2)
  - Myelosuppression [Unknown]
  - Product use issue [Unknown]
